FAERS Safety Report 18599724 (Version 2)
Quarter: 2020Q4

REPORT INFORMATION
  Report Type: Report from Study
  Country: US (occurrence: US)
  Receive Date: 20201210
  Receipt Date: 20201231
  Transmission Date: 20210114
  Serious: No
  Sender: FDA-Public Use
  Company Number: US-SA-2020SA352930

PATIENT

DRUGS (4)
  1. DUPILUMAB [Suspect]
     Active Substance: DUPILUMAB
     Indication: NASAL POLYPS
     Dosage: 300 MG, QOW
     Route: 058
     Dates: start: 20200619, end: 2020
  2. DUPILUMAB [Suspect]
     Active Substance: DUPILUMAB
     Dosage: 300 MG, QOW
     Route: 058
     Dates: start: 202011
  3. AMPHETAMINE [Concomitant]
     Active Substance: AMPHETAMINE
  4. DEXTROAMPHETAMINE [DEXAMFETAMINE] [Concomitant]
     Active Substance: DEXTROAMPHETAMINE

REACTIONS (2)
  - Arthralgia [Recovered/Resolved]
  - Cough [Unknown]

NARRATIVE: CASE EVENT DATE: 2020
